FAERS Safety Report 24304929 (Version 1)
Quarter: 2024Q3

REPORT INFORMATION
  Report Type: Report from Study
  Country: US (occurrence: US)
  Receive Date: 20240911
  Receipt Date: 20240911
  Transmission Date: 20241017
  Serious: Yes (Other)
  Sender: ABBVIE
  Company Number: US-ABBVIE-5914335

PATIENT
  Sex: Male

DRUGS (1)
  1. RINVOQ [Suspect]
     Active Substance: UPADACITINIB
     Indication: Dermatitis atopic
     Route: 048
     Dates: start: 20240419

REACTIONS (3)
  - Hypoacusis [Recovering/Resolving]
  - Back disorder [Recovering/Resolving]
  - Wound complication [Recovering/Resolving]

NARRATIVE: CASE EVENT DATE: 20240101
